FAERS Safety Report 24965626 (Version 1)
Quarter: 2025Q1

REPORT INFORMATION
  Report Type: Spontaneous
  Country: US (occurrence: None)
  Receive Date: 20250213
  Receipt Date: 20250213
  Transmission Date: 20250409
  Serious: Yes (Other)
  Sender: FDA-CTU
  Company Number: None

PATIENT
  Age: 53 Year
  Sex: Female

DRUGS (2)
  1. TIMOLOL [Suspect]
     Active Substance: TIMOLOL
     Indication: Pigmentary glaucoma
     Dosage: FREQUENCY : DAILY;?
     Route: 047
     Dates: start: 20241212, end: 20250113
  2. TIMOLOL [Concomitant]
     Active Substance: TIMOLOL
     Dates: start: 20241212, end: 20250113

REACTIONS (2)
  - Vision blurred [None]
  - Burning sensation [None]

NARRATIVE: CASE EVENT DATE: 20241230
